FAERS Safety Report 24712310 (Version 1)
Quarter: 2024Q4

REPORT INFORMATION
  Report Type: Spontaneous
  Country: SE (occurrence: SE)
  Receive Date: 20241209
  Receipt Date: 20241209
  Transmission Date: 20250114
  Serious: Yes (Life-Threatening, Disabling, Other)
  Sender: INSUD PHARMA
  Company Number: None

PATIENT
  Age: 38 Year
  Sex: Female
  Weight: 57 kg

DRUGS (1)
  1. DROSPIRENONE [Suspect]
     Active Substance: DROSPIRENONE
     Indication: Contraception
     Dosage: 1 TABLETT PER DAG
     Route: 048
     Dates: start: 20230901, end: 20240720

REACTIONS (1)
  - Ovarian neoplasm [Unknown]

NARRATIVE: CASE EVENT DATE: 20240719
